FAERS Safety Report 17122001 (Version 3)
Quarter: 2022Q2

REPORT INFORMATION
  Report Type: Spontaneous
  Country: US (occurrence: US)
  Receive Date: 20191206
  Receipt Date: 20220420
  Transmission Date: 20220721
  Serious: No
  Sender: FDA-Public Use
  Company Number: US-PFIZER INC-2019385612

PATIENT
  Age: 59 Year
  Sex: Female

DRUGS (1)
  1. CHANTIX [Suspect]
     Active Substance: VARENICLINE TARTRATE
     Indication: Smoking cessation therapy
     Dosage: UNK

REACTIONS (6)
  - Stress [Unknown]
  - Blood glucose decreased [Unknown]
  - Bradyphrenia [Unknown]
  - Feeling abnormal [Unknown]
  - Illness [Unknown]
  - Vomiting [Unknown]
